FAERS Safety Report 13272127 (Version 1)
Quarter: 2017Q1

REPORT INFORMATION
  Report Type: Spontaneous
  Country: US (occurrence: US)
  Receive Date: 20170224
  Receipt Date: 20170224
  Transmission Date: 20170428
  Serious: Yes (Disabling, Other)
  Sender: FDA-Public Use
  Company Number: None

PATIENT
  Age: 65 Year
  Sex: Female
  Weight: 78.75 kg

DRUGS (16)
  1. PAPAYA ENZYME [Concomitant]
  2. AZELASTINE (ASTEPRO) [Concomitant]
  3. DESLORATADINE (CLARINEX) [Concomitant]
  4. ESTER-C [Concomitant]
     Active Substance: CALCIUM\VITAMINS
  5. CLONIDINE HCL (CATAPRES) [Concomitant]
  6. CONJ ESTROGENS-BAZEDOXIFENE (DUAVEE) [Concomitant]
  7. PROBIOTIC ACIDOPHILUS [Concomitant]
     Active Substance: LACTOBACILLUS ACIDOPHILUS
  8. ASPIRIN. [Concomitant]
     Active Substance: ASPIRIN
  9. VITAMIN B12 [Concomitant]
     Active Substance: CYANOCOBALAMIN
  10. CALCIUM CARBONATE/VITAMIN D3 (CALCIUM+D [Concomitant]
  11. PANTOPRAZOLE SOD [Suspect]
     Active Substance: PANTOPRAZOLE SODIUM
     Indication: GASTROOESOPHAGEAL REFLUX DISEASE
     Dosage: ?          QUANTITY:1 TABLET(S);?
     Route: 048
     Dates: start: 20150915, end: 20170108
  12. ECHINACEA [Concomitant]
     Active Substance: ECHINACEA, UNSPECIFIED
  13. ALOE VERA GEL [Concomitant]
     Active Substance: ALOE VERA LEAF
  14. TELMISARTAN (MICARDIS) [Concomitant]
  15. VALACYCLOVIR (VALTREX) [Concomitant]
  16. MULTIVITAMIN [Concomitant]
     Active Substance: VITAMINS

REACTIONS (8)
  - Fatigue [None]
  - Constipation [None]
  - Incontinence [None]
  - Sinusitis [None]
  - Paraesthesia [None]
  - Feeling abnormal [None]
  - Vitamin B12 deficiency [None]
  - Hypoaesthesia [None]

NARRATIVE: CASE EVENT DATE: 20161015
